FAERS Safety Report 4909960-3 (Version None)
Quarter: 2006Q1

REPORT INFORMATION
  Report Type: 
  Country: None (occurrence: None)
  Receive Date: 20060213
  Receipt Date: 20060106
  Transmission Date: 20060701
  Serious: Yes (Hospitalization)
  Sender: FDA-Public Use
  Company Number: JP-SANOFI-SYNTHELABO-A01200600922

PATIENT
  Sex: Female

DRUGS (18)
  1. MILRILA [Suspect]
     Indication: URINE OUTPUT DECREASED
     Dosage: 0.25 MCG/KG/MIN
     Route: 041
     Dates: start: 20060102, end: 20060102
  2. MILRILA [Suspect]
     Dosage: 0.4 MCG/KG/MIN
     Route: 041
     Dates: start: 20060103, end: 20060103
  3. MERCAZOLE [Concomitant]
     Indication: DRUG USE FOR UNKNOWN INDICATION
     Route: 048
     Dates: start: 20060102
  4. BLOSTAR M [Concomitant]
     Indication: DRUG USE FOR UNKNOWN INDICATION
     Route: 048
     Dates: start: 20060102
  5. ASPIRIN [Concomitant]
     Indication: DRUG USE FOR UNKNOWN INDICATION
     Route: 048
     Dates: start: 20060102
  6. TICLOPIDINE HCL [Concomitant]
     Indication: DRUG USE FOR UNKNOWN INDICATION
     Route: 048
     Dates: start: 20060102
  7. PARIET [Concomitant]
     Indication: DRUG USE FOR UNKNOWN INDICATION
     Route: 048
     Dates: start: 20060103
  8. HEPARIN [Concomitant]
     Indication: DRUG USE FOR UNKNOWN INDICATION
     Route: 042
     Dates: start: 20060101
  9. LASIX [Concomitant]
     Indication: DRUG USE FOR UNKNOWN INDICATION
     Dosage: 20 MG
     Route: 042
     Dates: start: 20060101
  10. DOPAMINE HCL [Concomitant]
     Indication: DRUG USE FOR UNKNOWN INDICATION
     Dosage: 72 ML
     Route: 042
     Dates: start: 20060101, end: 20060103
  11. NITROGLYCERIN [Concomitant]
     Indication: DRUG USE FOR UNKNOWN INDICATION
     Dosage: 48 MG
     Route: 042
     Dates: start: 20060101, end: 20060102
  12. SIGMART [Concomitant]
     Indication: DRUG USE FOR UNKNOWN INDICATION
     Dosage: 48 MG
     Route: 042
     Dates: start: 20060101, end: 20060111
  13. NOR ADRENALIN [Concomitant]
     Indication: DRUG USE FOR UNKNOWN INDICATION
     Dosage: UNK
     Route: 042
     Dates: start: 20060102, end: 20060102
  14. DOPMIN K [Concomitant]
     Indication: DRUG USE FOR UNKNOWN INDICATION
     Dosage: UNK
     Route: 042
     Dates: start: 20060103, end: 20060103
  15. ALBUMINAR [Concomitant]
     Indication: DRUG USE FOR UNKNOWN INDICATION
     Dosage: 250 ML
     Route: 042
     Dates: start: 20060103, end: 20060103
  16. DIGOSIN [Concomitant]
     Indication: DRUG USE FOR UNKNOWN INDICATION
     Route: 042
     Dates: start: 20060103
  17. FIRSTCIN [Concomitant]
     Indication: DRUG USE FOR UNKNOWN INDICATION
     Dosage: 1 G
     Route: 042
     Dates: start: 20060103
  18. PROPOFOL [Concomitant]
     Indication: DRUG USE FOR UNKNOWN INDICATION
     Dosage: UNK
     Route: 042
     Dates: start: 20060103

REACTIONS (7)
  - ANURIA [None]
  - BLOOD PRESSURE DECREASED [None]
  - CARDIAC FAILURE [None]
  - DEHYDRATION [None]
  - EJECTION FRACTION DECREASED [None]
  - RENAL DISORDER [None]
  - RENAL FAILURE [None]
